FAERS Safety Report 15880854 (Version 8)
Quarter: 2022Q1

REPORT INFORMATION
  Report Type: Report from Study
  Country: FR (occurrence: FR)
  Receive Date: 20190128
  Receipt Date: 20220111
  Transmission Date: 20220424
  Serious: Yes (Other)
  Sender: FDA-Public Use
  Company Number: FR-GILEAD-2017-0309045

PATIENT
  Age: 47 Year

DRUGS (5)
  1. EMTRICITABINE\TENOFOVIR DISOPROXIL FUMARATE [Suspect]
     Active Substance: EMTRICITABINE\TENOFOVIR DISOPROXIL FUMARATE
     Indication: HIV infection
     Dosage: UNK, 3/7 DAYS
     Dates: start: 2001
  2. EMTRICITABINE\TENOFOVIR DISOPROXIL FUMARATE [Suspect]
     Active Substance: EMTRICITABINE\TENOFOVIR DISOPROXIL FUMARATE
     Dosage: UNK
     Dates: start: 2015
  3. EMTRICITABINE\TENOFOVIR DISOPROXIL FUMARATE [Suspect]
     Active Substance: EMTRICITABINE\TENOFOVIR DISOPROXIL FUMARATE
     Dosage: 1 DOSAGE FORM, QD
  4. EMTRICITABINE\RILPIVIRINE\TENOFOVIR DISOPROXIL FUMARATE [Suspect]
     Active Substance: EMTRICITABINE\RILPIVIRINE\TENOFOVIR DISOPROXIL FUMARATE
     Indication: HIV infection
     Dosage: UNK
     Route: 048
     Dates: start: 2015
  5. EDURANT [Concomitant]
     Active Substance: RILPIVIRINE HYDROCHLORIDE
     Indication: Product used for unknown indication
     Dosage: UNK
     Dates: start: 20171117

REACTIONS (19)
  - Gout [Not Recovered/Not Resolved]
  - Blood triglycerides abnormal [Unknown]
  - Diabetes mellitus [Unknown]
  - Blood cholesterol increased [Recovering/Resolving]
  - Blood uric acid increased [Not Recovered/Not Resolved]
  - Rheumatoid arthritis [Unknown]
  - Arthralgia [Not Recovered/Not Resolved]
  - Anxiety [Not Recovered/Not Resolved]
  - Muscle spasms [Not Recovered/Not Resolved]
  - Gait disturbance [Not Recovered/Not Resolved]
  - Blood creatinine increased [Recovering/Resolving]
  - Renal failure [Unknown]
  - Intentional product misuse [Not Recovered/Not Resolved]
  - Drug resistance [Unknown]
  - Off label use [Unknown]
  - Blood triglycerides increased [Unknown]
  - CD4 lymphocytes decreased [Unknown]
  - Myalgia [Unknown]
  - Vitamin D deficiency [Unknown]
